FAERS Safety Report 5598157-2 (Version None)
Quarter: 2008Q1

REPORT INFORMATION
  Report Type: 
  Country: None (occurrence: None)
  Receive Date: 20080117
  Receipt Date: 20080117
  Transmission Date: 20080703
  Serious: Yes (Hospitalization)
  Sender: FDA-Public Use
  Company Number: None

PATIENT
  Sex: Female
  Weight: 42.27 kg

DRUGS (2)
  1. CISPLATIN [Suspect]
     Dosage: 86.4 MG
  2. ERBITUX [Suspect]
     Dosage: 1296 MG

REACTIONS (4)
  - CONSTIPATION [None]
  - NAUSEA [None]
  - PAIN IN EXTREMITY [None]
  - VOMITING [None]
